FAERS Safety Report 10092840 (Version 1)
Quarter: 2014Q2

REPORT INFORMATION
  Report Type: Spontaneous
  Country: US (occurrence: US)
  Receive Date: 20140421
  Receipt Date: 20140421
  Transmission Date: 20141212
  Serious: No
  Sender: FDA-Public Use
  Company Number: US-SANOFI-AVENTIS-2013SA088011

PATIENT
  Age: 49 Year
  Sex: Male
  Weight: 99.79 kg

DRUGS (3)
  1. ALLEGRA [Suspect]
     Indication: HYPERSENSITIVITY
     Route: 048
     Dates: start: 20130901
  2. ADVAIR [Concomitant]
     Indication: ASTHMA
     Dosage: DOSE 250/50
     Dates: start: 201308, end: 201310
  3. ALBUTEROL [Concomitant]
     Indication: ASTHMA
     Dosage: MAY BE 2-3 TIMES A WEEK
     Dates: start: 201308, end: 201309

REACTIONS (3)
  - Tremor [Recovered/Resolved]
  - Sinus headache [Not Recovered/Not Resolved]
  - Insomnia [Recovered/Resolved]
